FAERS Safety Report 9566533 (Version 2)
Quarter: 2013Q4

REPORT INFORMATION
  Report Type: Spontaneous
  Country: JP (occurrence: JP)
  Receive Date: 20130930
  Receipt Date: 20131022
  Transmission Date: 20140711
  Serious: Yes (Hospitalization)
  Sender: FDA-Public Use
  Company Number: PHHY2013JP108706

PATIENT
  Age: 90 Year
  Sex: Female

DRUGS (1)
  1. EXELON PATCH [Suspect]
     Route: 062

REACTIONS (1)
  - Femur fracture [Unknown]
